FAERS Safety Report 9627429 (Version 2)
Quarter: 2013Q4

REPORT INFORMATION
  Report Type: Not Available
  Country: US (occurrence: US)
  Receive Date: 20131016
  Receipt Date: 20131016
  Transmission Date: 20140711
  Serious: Yes (Other)
  Sender: FDA-Public Use
  Company Number: US-LUNDBECK-DKLU1087662

PATIENT
  Age: 9 Month
  Sex: Female
  Weight: 9.04 kg

DRUGS (7)
  1. SABRIL (FOR ORAL SOLUTION) [Suspect]
     Indication: STATUS EPILEPTICUS
     Route: 048
     Dates: start: 20121018
  2. SABRIL (FOR ORAL SOLUTION) [Suspect]
     Indication: ATYPICAL BENIGN PARTIAL EPILEPSY
  3. SABRIL (FOR ORAL SOLUTION) [Suspect]
     Indication: COMPLEX PARTIAL SEIZURES
  4. SABRIL (FOR ORAL SOLUTION) [Suspect]
     Indication: EPILEPSY
  5. ONFI [Concomitant]
     Indication: PRODUCT USED FOR UNKNOWN INDICATION
     Route: 048
     Dates: start: 20121016
  6. TOPAMAX [Concomitant]
     Indication: PRODUCT USED FOR UNKNOWN INDICATION
     Route: 048
  7. PHENOBARBITAL [Concomitant]
     Indication: PRODUCT USED FOR UNKNOWN INDICATION

REACTIONS (1)
  - Convulsion [Unknown]
